FAERS Safety Report 7039927-3 (Version None)
Quarter: 2010Q4

REPORT INFORMATION
  Report Type: 
  Country: None (occurrence: None)
  Receive Date: 20101012
  Receipt Date: 20100930
  Transmission Date: 20110411
  Serious: Yes (Death)
  Sender: FDA-Public Use
  Company Number: JP-PFIZER INC-2010124400

PATIENT
  Age: 42 Year
  Sex: Male

DRUGS (5)
  1. LYRICA [Suspect]
     Indication: PAIN
     Dosage: 450 MG/DAY
     Route: 048
     Dates: end: 20100928
  2. FENTANYL [Suspect]
     Dosage: UNK
     Route: 062
  3. DESYREL [Concomitant]
     Indication: INSOMNIA
     Dosage: 50 MG, DAY
     Route: 048
     Dates: end: 20100928
  4. SOLANAX [Concomitant]
     Indication: INSOMNIA
     Dosage: UNK
     Route: 048
     Dates: end: 20100928
  5. CYMBALTA [Concomitant]
     Dosage: UNK
     Route: 048

REACTIONS (1)
  - CARDIO-RESPIRATORY ARREST [None]
